FAERS Safety Report 13295589 (Version 2)
Quarter: 2017Q1

REPORT INFORMATION
  Report Type: Spontaneous
  Country: TR (occurrence: TR)
  Receive Date: 20170303
  Receipt Date: 20170306
  Transmission Date: 20170428
  Serious: Yes (Life-Threatening, Hospitalization)
  Sender: FDA-Public Use
  Company Number: TR-TEVA-744175ISR

PATIENT
  Age: 38 Year
  Sex: Female

DRUGS (1)
  1. METHOTREXATE. [Suspect]
     Active Substance: METHOTREXATE
     Indication: HUMAN CHORIONIC GONADOTROPIN INCREASED
     Dosage: 50 MG/M2 (2 DOSES)
     Route: 065

REACTIONS (5)
  - Pelvic pain [Recovered/Resolved]
  - Tubal rupture [Recovered/Resolved]
  - Haemorrhage [Recovered/Resolved]
  - Oral disorder [Recovered/Resolved]
  - Toxicity to various agents [Recovered/Resolved]
